FAERS Safety Report 6011520-0 (Version None)
Quarter: 2008Q4

REPORT INFORMATION
  Report Type: 
  Country: None (occurrence: None)
  Receive Date: 20081218
  Receipt Date: 20080902
  Transmission Date: 20090506
  Serious: No
  Sender: FDA-Public Use
  Company Number: US-ASTRAZENECA-2008UW18067

PATIENT
  Age: 68 Year
  Sex: Female
  Weight: 65.8 kg

DRUGS (8)
  1. CRESTOR [Suspect]
     Indication: HYPERLIPIDAEMIA
     Dosage: 10 MG
     Route: 048
  2. ASPIRIN [Concomitant]
  3. ATENOL [Concomitant]
  4. DIAZEPAM [Concomitant]
  5. LASIX [Concomitant]
  6. NORTRIPTYLINE HCL [Concomitant]
  7. ALTACE [Concomitant]
  8. TRAZODONE HCL [Concomitant]

REACTIONS (2)
  - FATIGUE [None]
  - MALAISE [None]
